FAERS Safety Report 24824813 (Version 1)
Quarter: 2025Q1

REPORT INFORMATION
  Report Type: Spontaneous
  Country: US (occurrence: None)
  Receive Date: 20250108
  Receipt Date: 20250108
  Transmission Date: 20250409
  Serious: Yes (Disabling)
  Sender: FDA-CTU
  Company Number: None

PATIENT
  Age: 22 Year
  Sex: Female
  Weight: 58.5 kg

DRUGS (1)
  1. DUPIXENT [Suspect]
     Active Substance: DUPILUMAB
     Indication: Dermatitis atopic
     Route: 058
     Dates: start: 20210605, end: 20240605

REACTIONS (13)
  - Injection site urticaria [None]
  - Autoimmune disorder [None]
  - Connective tissue disorder [None]
  - Antinuclear antibody positive [None]
  - Complement factor C3 decreased [None]
  - Complement factor C4 decreased [None]
  - Fatigue [None]
  - Arthralgia [None]
  - Rash [None]
  - Butterfly rash [None]
  - Pain in extremity [None]
  - Neuralgia [None]
  - Depression [None]

NARRATIVE: CASE EVENT DATE: 20231010
